FAERS Safety Report 12477598 (Version 2)
Quarter: 2017Q1

REPORT INFORMATION
  Report Type: Spontaneous
  Country: JP (occurrence: JP)
  Receive Date: 20160617
  Receipt Date: 20170119
  Transmission Date: 20170428
  Serious: Yes (Death, Disabling)
  Sender: FDA-Public Use
  Company Number: JP-BAYER-2011-009442

PATIENT
  Age: 73 Year
  Sex: Male
  Weight: 65.7 kg

DRUGS (9)
  1. NEXAVAR [Suspect]
     Active Substance: SORAFENIB
     Indication: HEPATOCELLULAR CARCINOMA
     Dosage: DAILY DOSE 400 MG
     Route: 048
     Dates: start: 20100310, end: 20100516
  2. NEXAVAR [Suspect]
     Active Substance: SORAFENIB
     Indication: HEPATOCELLULAR CARCINOMA
     Dosage: 600 MG, QD
     Route: 048
     Dates: start: 20111006
  3. MAGMITT [Concomitant]
     Active Substance: MAGNESIUM OXIDE
     Route: 048
  4. COLONEL [Concomitant]
     Active Substance: CALCIUM POLYCARBOPHIL
     Route: 048
  5. LOXONIN [Concomitant]
     Active Substance: LOXOPROFEN SODIUM
  6. NEXAVAR [Suspect]
     Active Substance: SORAFENIB
     Indication: HEPATOCELLULAR CARCINOMA
     Dosage: DAILY DOSE 800 MG
     Route: 048
     Dates: start: 20100119, end: 20100309
  7. PARIET [Concomitant]
     Active Substance: RABEPRAZOLE SODIUM
     Route: 048
  8. NEXAVAR [Suspect]
     Active Substance: SORAFENIB
     Indication: HEPATOCELLULAR CARCINOMA
     Dosage: DAILY DOSE 600 MG
     Route: 048
     Dates: start: 20100517
  9. MYSLEE [Concomitant]
     Active Substance: ZOLPIDEM TARTRATE
     Route: 048

REACTIONS (5)
  - Anal abscess [Unknown]
  - Cerebral infarction [Recovered/Resolved with Sequelae]
  - Pneumonia [Fatal]
  - Dysphonia [Unknown]
  - Palmar-plantar erythrodysaesthesia syndrome [Unknown]

NARRATIVE: CASE EVENT DATE: 2010
